FAERS Safety Report 15396969 (Version 1)
Quarter: 2018Q3

REPORT INFORMATION
  Report Type: Spontaneous
  Country: US (occurrence: US)
  Receive Date: 20180918
  Receipt Date: 20180918
  Transmission Date: 20181010
  Serious: No
  Sender: FDA-Public Use
  Company Number: US-IMPAX LABORATORIES, INC-2018-IPXL-00564

PATIENT
  Age: 5 Year
  Sex: Female
  Weight: 17 kg

DRUGS (1)
  1. BUDESONIDE. [Suspect]
     Active Substance: BUDESONIDE
     Indication: ASTHMA
     Dosage: 2 ML, QD
     Route: 055
     Dates: start: 201708, end: 20180218

REACTIONS (6)
  - Poor quality drug administered [Unknown]
  - Drug dose omission [Unknown]
  - Fatigue [Recovered/Resolved]
  - Irritability [Recovered/Resolved]
  - Liquid product physical issue [Unknown]
  - Productive cough [Recovered/Resolved]

NARRATIVE: CASE EVENT DATE: 2018
